FAERS Safety Report 7593832-2 (Version None)
Quarter: 2011Q3

REPORT INFORMATION
  Report Type: 
  Country: None (occurrence: None)
  Receive Date: 20110706
  Receipt Date: 20110623
  Transmission Date: 20111222
  Serious: Yes (Hospitalization, Other)
  Sender: FDA-Public Use
  Company Number: FR-UCBSA-035983

PATIENT
  Sex: Male

DRUGS (13)
  1. KEPPRA [Suspect]
     Indication: EPILEPSY
     Route: 048
     Dates: end: 20110101
  2. KEPPRA [Suspect]
     Route: 048
     Dates: start: 20110104, end: 20110106
  3. AUGMENTIN '125' [Suspect]
     Indication: LUNG DISORDER
     Dosage: 1G/125MG
     Route: 048
     Dates: start: 20110102, end: 20110107
  4. URBANYL [Suspect]
     Indication: EPILEPSY
     Route: 048
     Dates: start: 20110103, end: 20110106
  5. LOVENOX [Suspect]
     Route: 058
     Dates: start: 20110104, end: 20110111
  6. JANUVIA [Concomitant]
     Dosage: UNKNOWN DOSE
  7. ACETAMINOPHEN [Concomitant]
     Indication: PYREXIA
     Route: 048
     Dates: start: 20110105
  8. KEPPRA [Suspect]
     Route: 048
     Dates: start: 20110107
  9. STAGID 700MG [Suspect]
     Indication: TYPE 2 DIABETES MELLITUS
     Route: 048
     Dates: start: 20110106
  10. PHENYTOIN [Suspect]
     Indication: EPILEPSY
     Route: 048
     Dates: start: 20110104, end: 20110106
  11. ACETAMINOPHEN [Concomitant]
     Indication: PYREXIA
     Dates: start: 20110102, end: 20110103
  12. ACETAMINOPHEN [Concomitant]
     Dates: start: 20110104, end: 20110105
  13. KEPPRA [Suspect]
     Route: 048
     Dates: start: 20110102, end: 20110103

REACTIONS (5)
  - CHOLESTASIS [None]
  - HEPATIC ENZYME INCREASED [None]
  - STATUS EPILEPTICUS [None]
  - LUNG DISORDER [None]
  - PANCREATITIS ACUTE [None]
